FAERS Safety Report 7532559-X (Version None)
Quarter: 2011Q2

REPORT INFORMATION
  Report Type: 
  Country: None (occurrence: None)
  Receive Date: 20110608
  Receipt Date: 20110527
  Transmission Date: 20111010
  Serious: Yes (Hospitalization, Other)
  Sender: FDA-Public Use
  Company Number: PHFR2011IE01773

PATIENT
  Sex: Female

DRUGS (3)
  1. CLOZAPINE [Suspect]
     Indication: SCHIZOPHRENIA
     Route: 048
     Dates: start: 20040715, end: 20110221
  2. MOVIPREP [Concomitant]
     Indication: CONSTIPATION
  3. CLOZAPINE [Suspect]
     Dosage: 300 MG, UNK
     Route: 048
     Dates: end: 20110325

REACTIONS (8)
  - DRUG INEFFECTIVE [None]
  - EATING DISORDER [None]
  - DEHYDRATION [None]
  - STARING [None]
  - SCHIZOPHRENIA [None]
  - BLOOD CREATINE PHOSPHOKINASE INCREASED [None]
  - COMMUNICATION DISORDER [None]
  - CATATONIA [None]
